FAERS Safety Report 19946353 (Version 1)
Quarter: 2021Q4

REPORT INFORMATION
  Report Type: Spontaneous
  Country: DE (occurrence: DE)
  Receive Date: 20211012
  Receipt Date: 20211012
  Transmission Date: 20220303
  Serious: Yes (Hospitalization)
  Sender: FDA-Public Use
  Company Number: DE-ADRED-06527-01

PATIENT
  Age: 80 Year
  Sex: Female

DRUGS (13)
  1. IBUPROFEN [Suspect]
     Active Substance: IBUPROFEN
     Indication: Product used for unknown indication
     Dosage: 600 MG, SINCE 1D CONVERTED TO AS-NEEDED MEDICATION UP TO 3 PER DAY
     Route: 048
  2. APIXABAN [Suspect]
     Active Substance: APIXABAN
     Indication: Product used for unknown indication
     Dosage: 2.5 MG, 1-0-1-0, TABLETTEN
     Route: 048
  3. CARBIMAZOLE [Concomitant]
     Active Substance: CARBIMAZOLE
     Dosage: 5 MG, 0.5-0-0-0, TABLETTEN
     Route: 048
  4. PROPRANOLOL [Concomitant]
     Active Substance: PROPRANOLOL HYDROCHLORIDE
     Dosage: 10 MG, 1-1-1-0, TABLETTEN
     Route: 048
  5. DIMENHYDRINATE [Concomitant]
     Active Substance: DIMENHYDRINATE
     Dosage: UNK, 50 MG,IF NEEDED NOT MORE THAN 3 IN 24H, TABLETS
     Route: 048
  6. FUROSEMIDE [Concomitant]
     Active Substance: FUROSEMIDE
     Dosage: UNK, 40 MG, BEI BEDARF, TABLETTEN
     Route: 048
  7. CANDESARTAN [Concomitant]
     Active Substance: CANDESARTAN
     Dosage: UNK, 8 MG, 0.5-0-0-0, TABLETTEN
     Route: 048
  8. TILIDINE                           /00205402/ [Concomitant]
     Dosage: UNK, 8|100 MG, BEI BEDARF 1 IN 24H, TABLETTEN
     Route: 048
  9. LOPERAMIDE [Concomitant]
     Active Substance: LOPERAMIDE
     Dosage: 2 MG, IF NEEDED, MAXIMUM 2 IN 24 H, TABLETS
     Route: 048
  10. PANTOPRAZOLE [Concomitant]
     Active Substance: PANTOPRAZOLE
     Dosage: UNK, 40 MG, 1-0-1-0, TABLETS
     Route: 048
  11. DIGITOXIN [Concomitant]
     Active Substance: DIGITOXIN
     Dosage: 0.05 MG, 1-0-0-0, TABLETTEN
     Route: 048
  12. LACTULOSE [Concomitant]
     Active Substance: LACTULOSE
     Dosage: UNK, 3.335|5 G/ML, 10ML BEI BEDARF IN 24H, SAFT
     Route: 048
  13. PROSPAN                            /01017805/ [Concomitant]
     Dosage: UNK, 35|5 MG/ML, AS NEEDED, JUICE.
     Route: 048

REACTIONS (3)
  - Nausea [Not Recovered/Not Resolved]
  - Fall [Unknown]
  - Medication error [Unknown]
